FAERS Safety Report 21747761 (Version 2)
Quarter: 2022Q4

REPORT INFORMATION
  Report Type: Report from Study
  Country: US (occurrence: US)
  Receive Date: 20221219
  Receipt Date: 20221220
  Transmission Date: 20230113
  Serious: No
  Sender: FDA-Public Use
  Company Number: US-ABBVIE-4233124

PATIENT
  Age: 52 Year
  Sex: Female

DRUGS (2)
  1. HUMIRA [Suspect]
     Active Substance: ADALIMUMAB
     Indication: Psoriasis
     Dosage: FORM STRENGTH: 40 MG?CITRATE FREE
     Route: 058
  2. HUMIRA [Suspect]
     Active Substance: ADALIMUMAB
     Indication: Psoriatic arthropathy
     Dosage: FORM STRENGTH: 40 MG?CITRATE FREE
     Route: 058

REACTIONS (7)
  - Laryngitis [Recovering/Resolving]
  - Joint stiffness [Unknown]
  - Musculoskeletal stiffness [Unknown]
  - Scratch [Unknown]
  - Palpitations [Unknown]
  - Inflammation [Unknown]
  - Acne [Unknown]

NARRATIVE: CASE EVENT DATE: 20221101
